FAERS Safety Report 19042247 (Version 1)
Quarter: 2021Q1

REPORT INFORMATION
  Report Type: Spontaneous
  Country: US (occurrence: US)
  Receive Date: 20210322
  Receipt Date: 20210322
  Transmission Date: 20210420
  Serious: No
  Sender: FDA-Public Use
  Company Number: US-BAYER-2021-107066

PATIENT
  Sex: Female

DRUGS (3)
  1. MIRALAX [Suspect]
     Active Substance: POLYETHYLENE GLYCOL 3350
     Dosage: UNK
  2. ZOFRAN [Suspect]
     Active Substance: ONDANSETRON HYDROCHLORIDE
  3. LENVIMA [Suspect]
     Active Substance: LENVATINIB
     Indication: BONE NEOPLASM
     Dosage: 14 MG, QD
     Route: 048

REACTIONS (3)
  - Diarrhoea [Unknown]
  - Nausea [None]
  - Vomiting [None]
